FAERS Safety Report 16330516 (Version 1)
Quarter: 2019Q2

REPORT INFORMATION
  Report Type: Report from Study
  Country: CN (occurrence: CN)
  Receive Date: 20190520
  Receipt Date: 20190520
  Transmission Date: 20190711
  Serious: Yes (Other)
  Sender: FDA-Public Use
  Company Number: CN-ROCHE-2316976

PATIENT

DRUGS (2)
  1. GANCICLOVIR. [Suspect]
     Active Substance: GANCICLOVIR
     Indication: HEPATITIS CHOLESTATIC
     Dosage: 1 TIME PER DAY AND EVERY 2 WEEKS
     Route: 041
  2. GANCICLOVIR. [Suspect]
     Active Substance: GANCICLOVIR
     Indication: CYTOMEGALOVIRUS HEPATITIS
     Route: 041

REACTIONS (2)
  - Granulocytopenia [Unknown]
  - Blood creatine phosphokinase MB increased [Unknown]
